FAERS Safety Report 12915998 (Version 1)
Quarter: 2016Q4

REPORT INFORMATION
  Report Type: Spontaneous
  Country: US (occurrence: US)
  Receive Date: 20161107
  Receipt Date: 20161107
  Transmission Date: 20170207
  Serious: No
  Sender: FDA-Public Use
  Company Number: US-AUROBINDO-AUR-APU-2016-02060

PATIENT

DRUGS (1)
  1. METOPROLOL. [Suspect]
     Active Substance: METOPROLOL
     Indication: ARRHYTHMIA
     Dosage: 1/2 TABLET TWICE DAILY
     Route: 065
     Dates: start: 20160223, end: 20160224

REACTIONS (5)
  - Palpitations [Recovered/Resolved]
  - Product substitution issue [Recovered/Resolved]
  - Blood pressure fluctuation [Recovered/Resolved]
  - Arrhythmia [Recovered/Resolved]
  - Dyspnoea [Recovered/Resolved]

NARRATIVE: CASE EVENT DATE: 20160223
